FAERS Safety Report 4819539-X (Version None)
Quarter: 2005Q4

REPORT INFORMATION
  Report Type: 
  Country: None (occurrence: None)
  Receive Date: 20051102
  Receipt Date: 20051024
  Transmission Date: 20060501
  Serious: Yes (Hospitalization)
  Sender: FDA-Public Use
  Company Number: US-2005-008896

PATIENT
  Age: 48 Year
  Sex: Male

DRUGS (3)
  1. BETASERON [Suspect]
     Indication: RELAPSING-REMITTING MULTIPLE SCLEROSIS
     Dosage: 8 MIU, EVERY 2D, SUBCUTANEOUS
     Route: 058
     Dates: start: 20020910
  2. HYZAAR [Concomitant]
  3. ZYRTEC [Concomitant]

REACTIONS (2)
  - DYSPNOEA [None]
  - MULTIPLE SCLEROSIS [None]
